FAERS Safety Report 12985846 (Version 2)
Quarter: 2017Q1

REPORT INFORMATION
  Report Type: Spontaneous
  Country: US (occurrence: US)
  Receive Date: 20161130
  Receipt Date: 20170119
  Transmission Date: 20170428
  Serious: No
  Sender: FDA-Public Use
  Company Number: US-009507513-1611USA007768

PATIENT
  Age: 37 Year
  Sex: Female
  Weight: 64.85 kg

DRUGS (5)
  1. FOLLISTIM [Suspect]
     Active Substance: FOLLITROPIN
     Indication: OVULATION INDUCTION
     Dosage: 450 DAILY
     Route: 058
     Dates: start: 20161109, end: 20161123
  2. FOLLISTIM [Suspect]
     Active Substance: FOLLITROPIN
     Indication: INFERTILITY
     Dosage: UNK
  3. MENOPUR [Concomitant]
     Active Substance: FOLLITROPIN\LUTEINIZING HORMONE
     Indication: OVULATION INDUCTION
     Dosage: 150 IU, QD
     Route: 058
     Dates: start: 20161109, end: 20161123
  4. FOLLITROPIN BETA [Suspect]
     Active Substance: FOLLITROPIN
     Indication: OVULATION INDUCTION
     Dosage: 450 DF, QD
     Dates: start: 20161109
  5. FOLLITROPIN BETA [Suspect]
     Active Substance: FOLLITROPIN
     Indication: INFERTILITY

REACTIONS (4)
  - Drug dose omission [Unknown]
  - Therapy non-responder [Unknown]
  - Device malfunction [Unknown]
  - Incorrect dose administered by device [Unknown]

NARRATIVE: CASE EVENT DATE: 20161109
